FAERS Safety Report 10153438 (Version 1)
Quarter: 2014Q2

REPORT INFORMATION
  Report Type: Spontaneous
  Country: US (occurrence: US)
  Receive Date: 20140505
  Receipt Date: 20140505
  Transmission Date: 20141212
  Serious: Yes (Other)
  Sender: FDA-Public Use
  Company Number: US-GE HEALTHCARE MEDICAL DIAGNOSTICS-OSCN-PR-1404L-0094

PATIENT
  Sex: 0

DRUGS (2)
  1. OMNISCAN [Suspect]
     Indication: PRODUCT USED FOR UNKNOWN INDICATION
     Dosage: DOSE NOT REPORTED
     Route: 065
  2. OMNISCAN [Suspect]
     Indication: DIAGNOSTIC PROCEDURE

REACTIONS (1)
  - Nephrogenic systemic fibrosis [Unknown]
